FAERS Safety Report 23829517 (Version 1)
Quarter: 2024Q2

REPORT INFORMATION
  Report Type: Spontaneous
  Country: CN (occurrence: None)
  Receive Date: 20240508
  Receipt Date: 20240508
  Transmission Date: 20240716
  Serious: Yes (Other)
  Sender: FDA-Public Use
  Company Number: CN-MLMSERVICE-20240423-PI036234-00150-1

PATIENT
  Age: 19 Year
  Sex: Male

DRUGS (11)
  1. CYCLOPHOSPHAMIDE [Concomitant]
     Active Substance: CYCLOPHOSPHAMIDE
     Indication: Alveolar rhabdomyosarcoma
     Dosage: D1 (1.2G/M2) ; CYCLICAL
  2. CARBOPLATIN [Concomitant]
     Active Substance: CARBOPLATIN
     Indication: Alveolar rhabdomyosarcoma
  3. BEVACIZUMAB [Concomitant]
     Active Substance: BEVACIZUMAB
     Indication: Alveolar rhabdomyosarcoma
     Dosage: D1 ; CYCLICAL
  4. ACTINOMYCIN D [Concomitant]
     Active Substance: DACTINOMYCIN
     Indication: Alveolar rhabdomyosarcoma
     Dosage: (DMAX=2.5 MG), D1 (.045G/KG)
  5. ARIPIPRAZOLE [Interacting]
     Active Substance: ARIPIPRAZOLE
  6. ETOPOSIDE [Concomitant]
     Active Substance: ETOPOSIDE
     Indication: Alveolar rhabdomyosarcoma
     Dosage: D1-D3
  7. VINCRISTINE [Interacting]
     Active Substance: VINCRISTINE
     Indication: Alveolar rhabdomyosarcoma
     Dosage: (DMAX= 2.0 MG), D1, D8, D15
  8. IRINOTECAN [Concomitant]
     Active Substance: IRINOTECAN
     Indication: Alveolar rhabdomyosarcoma
     Dosage: D1-D5
  9. FLUCONAZOLE [Interacting]
     Active Substance: FLUCONAZOLE
     Indication: Antifungal treatment
  10. ADRIAMYCIN [Concomitant]
     Active Substance: DOXORUBICIN HYDROCHLORIDE
     Indication: Alveolar rhabdomyosarcoma
     Dosage: D1-D2
  11. IFOSFAMIDE [Concomitant]
     Active Substance: IFOSFAMIDE
     Indication: Alveolar rhabdomyosarcoma
     Dosage: D1-D5 (1.8G/M2)

REACTIONS (2)
  - Neuropathy peripheral [Recovering/Resolving]
  - Drug interaction [Recovering/Resolving]
